FAERS Safety Report 18934858 (Version 1)
Quarter: 2021Q1

REPORT INFORMATION
  Report Type: Spontaneous
  Country: JP (occurrence: JP)
  Receive Date: 20210224
  Receipt Date: 20210224
  Transmission Date: 20210420
  Serious: Yes (Other)
  Sender: FDA-Public Use
  Company Number: JP-GLAXOSMITHKLINE-JP2021048092

PATIENT
  Sex: Female

DRUGS (3)
  1. SERETIDE [Suspect]
     Active Substance: FLUTICASONE PROPIONATE\SALMETEROL XINAFOATE
     Indication: PRODUCTIVE COUGH
     Dosage: UNK, BID, 1 INHALATION PER DOSE
     Route: 055
  2. SERETIDE [Suspect]
     Active Substance: FLUTICASONE PROPIONATE\SALMETEROL XINAFOATE
     Indication: COUGH
     Dosage: UNK, BID, USED IT OCCASIONALLY
     Route: 055
  3. SERETIDE [Suspect]
     Active Substance: FLUTICASONE PROPIONATE\SALMETEROL XINAFOATE
     Dosage: UNK, BID, 2 INHALATIONS PER DOSE
     Route: 055

REACTIONS (5)
  - Cough [Unknown]
  - Intentional underdose [Unknown]
  - Burn oral cavity [Unknown]
  - Intentional dose omission [Unknown]
  - Product use in unapproved indication [Unknown]
